FAERS Safety Report 23295156 (Version 2)
Quarter: 2023Q4

REPORT INFORMATION
  Report Type: Spontaneous
  Country: DE (occurrence: DE)
  Receive Date: 20231213
  Receipt Date: 20231219
  Transmission Date: 20240110
  Serious: Yes (Other)
  Sender: FDA-Public Use
  Company Number: DE-ABBVIE-5532558

PATIENT
  Age: 81 Year
  Sex: Male

DRUGS (2)
  1. OZURDEX [Suspect]
     Active Substance: DEXAMETHASONE
     Indication: Macular oedema
     Dosage: TIME INTERVAL: AS NECESSARY
     Route: 031
     Dates: start: 20230503, end: 20230503
  2. OZURDEX [Suspect]
     Active Substance: DEXAMETHASONE
     Dosage: TIME INTERVAL: AS NECESSARY
     Route: 031
     Dates: start: 201801, end: 201801

REACTIONS (4)
  - Corneal decompensation [Recovered/Resolved]
  - Device dislocation [Unknown]
  - Macular oedema [Unknown]
  - Retinal degeneration [Unknown]

NARRATIVE: CASE EVENT DATE: 20230501
